FAERS Safety Report 5007485-0 (Version None)
Quarter: 2006Q2

REPORT INFORMATION
  Report Type: 
  Country: None (occurrence: None)
  Receive Date: 20060517
  Receipt Date: 20060503
  Transmission Date: 20061013
  Serious: Yes (Other)
  Sender: FDA-Public Use
  Company Number: USA-2006-0024138

PATIENT
  Sex: Male

DRUGS (3)
  1. OXYCONTIN [Suspect]
     Indication: PROCEDURAL PAIN
     Dosage: 260 MG, DAILY
  2. SOMA [Concomitant]
  3. OXYCODONE (OXYCODONE) [Concomitant]

REACTIONS (3)
  - BACK PAIN [None]
  - COGNITIVE DISORDER [None]
  - DRUG DEPENDENCE [None]
